FAERS Safety Report 9017043 (Version 6)
Quarter: 2013Q1

REPORT INFORMATION
  Report Type: Spontaneous
  Country: GB (occurrence: GB)
  Receive Date: 20130117
  Receipt Date: 20130304
  Transmission Date: 20140127
  Serious: Yes (Death)
  Sender: FDA-Public Use
  Company Number: PHFR2013GB000666

PATIENT
  Age: 31 Year
  Sex: Male

DRUGS (6)
  1. CLOZARIL [Suspect]
     Indication: SCHIZOPHRENIA
     Dosage: UNK
     Route: 048
     Dates: start: 20070517
  2. BUDESONIDE W/FORMOTEROL FUMARATE [Concomitant]
     Dosage: UNK UKN, UNK
  3. CO-AMILOFRUSE [Concomitant]
     Dosage: UNK, QD
     Route: 048
  4. METFORMIN [Concomitant]
     Dosage: 300 UG, BID
     Route: 048
  5. SIMVASTATIN [Concomitant]
     Dosage: 40 UG, QD
     Route: 048
  6. TERBUTALINE [Concomitant]
     Dosage: 500 UG, QOS

REACTIONS (7)
  - Obesity [Fatal]
  - Deep vein thrombosis [Fatal]
  - Congestive cardiomyopathy [Fatal]
  - Pulmonary embolism [Fatal]
  - Neutrophil count increased [Unknown]
  - White blood cell count increased [Unknown]
  - Platelet count increased [Unknown]
